FAERS Safety Report 16923283 (Version 1)
Quarter: 2019Q4

REPORT INFORMATION
  Report Type: Spontaneous
  Country: US (occurrence: US)
  Receive Date: 20191016
  Receipt Date: 20191016
  Transmission Date: 20200122
  Serious: Yes (Hospitalization, Other)
  Sender: FDA-Public Use
  Company Number: US-DRREDDYS-USA/USA/19/0115202

PATIENT
  Age: 34 Year
  Sex: Female

DRUGS (1)
  1. SEVELAMER CARBONATE TABLETS, 800 MG [Suspect]
     Active Substance: SEVELAMER CARBONATE
     Indication: HYPERPHOSPHATAEMIA
     Route: 065

REACTIONS (5)
  - Complicated appendicitis [Recovered/Resolved]
  - Crystal deposit intestine [Recovered/Resolved]
  - Abscess intestinal [Recovered/Resolved]
  - Appendicitis perforated [Recovered/Resolved]
  - Peritonitis [Recovered/Resolved]
